FAERS Safety Report 4698591-9 (Version None)
Quarter: 2005Q2

REPORT INFORMATION
  Report Type: 
  Country: None (occurrence: None)
  Receive Date: 20050622
  Receipt Date: 20050608
  Transmission Date: 20051028
  Serious: Yes (Hospitalization, Other)
  Sender: FDA-Public Use
  Company Number: 200506IM000229

PATIENT
  Age: 49 Year
  Sex: Male
  Weight: 108.4097 kg

DRUGS (6)
  1. INFERGEN [Suspect]
     Indication: HEPATITIS C
     Dosage: 15 UG, QD, SUBCUTANEOUS
     Route: 058
     Dates: start: 20041224, end: 20050602
  2. ACTIMMUNE [Suspect]
     Indication: HEPATITIS C
     Dosage: 50 UG, TIW, SUBCUTANEOUS
     Route: 058
     Dates: start: 20041224, end: 20050602
  3. RIBAVIRIN [Suspect]
     Dosage: 12 MG/KG, QD, ORAL
     Route: 048
     Dates: start: 20041224, end: 20050602
  4. EFFEXOR [Concomitant]
  5. TRAZODONE [Concomitant]
  6. ACETAMINOPHEN [Concomitant]

REACTIONS (3)
  - ANAEMIA [None]
  - CELLULITIS [None]
  - NEUTROPENIA [None]
